FAERS Safety Report 25101907 (Version 1)
Quarter: 2025Q1

REPORT INFORMATION
  Report Type: Spontaneous
  Country: US (occurrence: US)
  Receive Date: 20250320
  Receipt Date: 20250320
  Transmission Date: 20250409
  Serious: No
  Sender: BRACCO
  Company Number: US-BRACCO-2024US05782

PATIENT

DRUGS (1)
  1. GASTROGRAFIN [Suspect]
     Active Substance: DIATRIZOATE MEGLUMINE\DIATRIZOATE SODIUM
     Dates: start: 20240911, end: 20240911

REACTIONS (3)
  - Drug ineffective [Unknown]
  - Product odour abnormal [Unknown]
  - No adverse event [Unknown]

NARRATIVE: CASE EVENT DATE: 20240911
